FAERS Safety Report 5333166-X (Version None)
Quarter: 2007Q2

REPORT INFORMATION
  Report Type: 
  Country: None (occurrence: None)
  Receive Date: 20070524
  Receipt Date: 20070515
  Transmission Date: 20071010
  Serious: Yes (Other)
  Sender: FDA-Public Use
  Company Number: PHBS2007JP07754

PATIENT
  Age: 70 Year
  Sex: Female

DRUGS (2)
  1. GLEEVEC [Suspect]
     Indication: GASTROINTESTINAL STROMAL TUMOUR
     Dosage: 200 MG/D
     Route: 048
  2. CELESTONE [Concomitant]
     Dosage: 2 DF/D
     Route: 048

REACTIONS (1)
  - HYPERGLYCAEMIA [None]
